FAERS Safety Report 6164737-9 (Version None)
Quarter: 2009Q2

REPORT INFORMATION
  Report Type: 
  Country: None (occurrence: None)
  Receive Date: 20090423
  Receipt Date: 20090417
  Transmission Date: 20091009
  Serious: Yes (Hospitalization)
  Sender: FDA-Public Use
  Company Number: US-BAYER-200918539NA

PATIENT
  Age: 80 Year
  Sex: Female

DRUGS (5)
  1. CIPROFLOXACIN HCL [Suspect]
     Indication: DRUG USE FOR UNKNOWN INDICATION
     Dosage: TOTAL DAILY DOSE: 1000 MG
     Route: 048
     Dates: start: 20090401, end: 20090412
  2. FORTICAL [Suspect]
     Indication: OSTEOPOROSIS
     Route: 045
  3. LISINOPRIL [Concomitant]
  4. NEXIUM [Concomitant]
  5. LUMIGAN [Concomitant]

REACTIONS (4)
  - BONE PAIN [None]
  - HEADACHE [None]
  - RHINORRHOEA [None]
  - VERTIGO POSITIONAL [None]
